FAERS Safety Report 8130271-X (Version None)
Quarter: 2012Q1

REPORT INFORMATION
  Report Type: 
  Country: None (occurrence: None)
  Receive Date: 20120210
  Receipt Date: 20120204
  Transmission Date: 20120608
  Serious: Yes (Death, Other)
  Sender: FDA-Public Use
  Company Number: PHHY2012PK010835

PATIENT
  Age: 13 Year
  Sex: Male

DRUGS (5)
  1. IMATINIB MESYLATE [Suspect]
     Indication: ACUTE MYELOID LEUKAEMIA
     Dosage: 600 MG, DAILY
  2. IMATINIB MESYLATE [Suspect]
     Dosage: 500 MG, DAILY
  3. IMATINIB MESYLATE [Suspect]
     Dosage: 400 MG, DAILY
  4. DAUNORUBICIN [Concomitant]
     Dosage: 50 MG/M2, DAILY FOR THREE DAYS
     Route: 042
  5. CYTARABINE [Concomitant]
     Dosage: 100 MG/M2, DAILY FOR SEVEN DAYS
     Route: 042

REACTIONS (4)
  - RASH [None]
  - DEATH [None]
  - BLAST CRISIS IN MYELOGENOUS LEUKAEMIA [None]
  - THROMBOCYTOPENIA [None]
